FAERS Safety Report 8829605 (Version 2)
Quarter: 2012Q4

REPORT INFORMATION
  Report Type: Spontaneous
  Country: IR (occurrence: None)
  Receive Date: 20121004
  Receipt Date: 20121011
  Transmission Date: 20130627
  Serious: Yes (Hospitalization, Other)
  Sender: FDA-Public Use
  Company Number: CLHC20120044

PATIENT
  Age: 40 Year
  Sex: Male

DRUGS (1)
  1. COLCHICINE [Suspect]
     Indication: FAMILIAL MEDITERRANEAN FEVER

REACTIONS (5)
  - Torsade de pointes [None]
  - Hypomagnesaemia [None]
  - Palpitations [None]
  - Asthenia [None]
  - Arrhythmia [None]
